FAERS Safety Report 7037319-4 (Version None)
Quarter: 2010Q4

REPORT INFORMATION
  Report Type: 
  Country: None (occurrence: None)
  Receive Date: 20101011
  Receipt Date: 20101004
  Transmission Date: 20110411
  Serious: Yes (Death, Hospitalization)
  Sender: FDA-Public Use
  Company Number: JP-ROCHE-731798

PATIENT
  Sex: Female
  Weight: 56.5 kg

DRUGS (9)
  1. TOCILIZUMAB [Suspect]
     Indication: PANCREATIC CARCINOMA NON-RESECTABLE
     Dosage: ROUTE: INTRAVENOUS 9NOT OTHERWISE SPECIFIED)
     Route: 042
     Dates: start: 20100825, end: 20100922
  2. GEMZAR [Suspect]
     Indication: PANCREATIC CARCINOMA NON-RESECTABLE
     Route: 065
     Dates: start: 20100825, end: 20100922
  3. TS-1 [Suspect]
     Indication: PANCREATIC CARCINOMA NON-RESECTABLE
     Route: 048
     Dates: start: 20100929
  4. MAGMITT [Concomitant]
     Route: 048
     Dates: start: 20100828
  5. GASMOTIN [Concomitant]
     Dosage: NOTE: BEGINNING OF DOSAGE DAY: TRIAL PREINITIATION
     Route: 048
  6. PARIET [Concomitant]
     Dosage: BEGINNING OF DOSAGE DAY: TRIAL PREINITIATION
     Route: 048
  7. OXYCONTIN [Concomitant]
     Dosage: BEGINNING OF DOSAGE DAY: TRIAL PREINITIATION
     Route: 048
  8. LOXONIN [Concomitant]
     Route: 048
  9. OXINORM [Concomitant]
     Dosage: BEGINNING OF DOSAGE DAY: TRIAL PREINITIATION, POWDERED MEDICINE
     Route: 048

REACTIONS (1)
  - MULTI-ORGAN FAILURE [None]
